FAERS Safety Report 11652721 (Version 1)
Quarter: 2015Q4

REPORT INFORMATION
  Report Type: Spontaneous
  Country: US (occurrence: US)
  Receive Date: 20151022
  Receipt Date: 20151022
  Transmission Date: 20160304
  Serious: No
  Sender: FDA-Public Use
  Company Number: US-BAYER-2015-449977

PATIENT
  Age: 53 Year
  Sex: Female
  Weight: 58.96 kg

DRUGS (2)
  1. CLARITIN REDITABS [Suspect]
     Active Substance: LORATADINE
     Indication: RHINORRHOEA
     Dosage: 1 DF, ONCE
     Route: 048
     Dates: start: 20151020, end: 20151020
  2. CLARITIN REDITABS [Suspect]
     Active Substance: LORATADINE
     Indication: SNEEZING

REACTIONS (2)
  - Drug ineffective [None]
  - Product use issue [None]

NARRATIVE: CASE EVENT DATE: 20151020
